FAERS Safety Report 21408013 (Version 9)
Quarter: 2023Q2

REPORT INFORMATION
  Report Type: Report from Study
  Country: CN (occurrence: CN)
  Receive Date: 20221004
  Receipt Date: 20230524
  Transmission Date: 20230722
  Serious: Yes (Other)
  Sender: FDA-Public Use
  Company Number: CN-FOSUNKITE-FOSUNKITE-20220394

PATIENT
  Age: 57 Year
  Sex: Female

DRUGS (38)
  1. AXICABTAGENE CILOLEUCEL [Suspect]
     Active Substance: AXICABTAGENE CILOLEUCEL
     Indication: Non-Hodgkin^s lymphoma
     Dosage: 1.2*10^8
     Route: 042
     Dates: start: 20220114, end: 20220114
  2. FLUDARABINE PHOSPHATE [Concomitant]
     Active Substance: FLUDARABINE PHOSPHATE
     Indication: Lymphodepletion
     Dosage: 50 MG
     Route: 041
     Dates: start: 20220105, end: 20220107
  3. CYTARABINE [Concomitant]
     Active Substance: CYTARABINE
     Indication: Lymphodepletion
     Dosage: 700 MG
     Route: 041
     Dates: start: 20220105, end: 20220106
  4. ETOPOSIDE [Concomitant]
     Active Substance: ETOPOSIDE
     Indication: Lymphodepletion
     Dosage: 200 MG
     Route: 041
     Dates: start: 20220105, end: 20220106
  5. MELPHALAN [Concomitant]
     Active Substance: MELPHALAN
     Indication: Lymphodepletion
     Dosage: 150 MG
     Route: 041
     Dates: start: 20220109
  6. SINTILIMAB [Concomitant]
     Active Substance: SINTILIMAB
     Indication: Non-Hodgkin^s lymphoma
     Dosage: 100 MG
     Route: 041
     Dates: start: 20220227, end: 20220227
  7. ZANUBRUTINIB [Concomitant]
     Active Substance: ZANUBRUTINIB
     Indication: Non-Hodgkin^s lymphoma
     Dosage: 4800 MG
     Route: 048
     Dates: start: 20220302, end: 20220302
  8. RITUXIMAB [Concomitant]
     Active Substance: RITUXIMAB
     Indication: Non-Hodgkin^s lymphoma
     Dosage: 1800 MG
     Route: 041
     Dates: start: 20220302, end: 20220409
  9. CYTARABINE [Concomitant]
     Active Substance: CYTARABINE
     Indication: Lymphodepletion
     Dosage: 700 MG
     Route: 041
     Dates: start: 20220106
  10. ALOXI [Concomitant]
     Active Substance: PALONOSETRON HYDROCHLORIDE
     Indication: Lymphodepletion
     Dosage: 0.25 MG
     Route: 041
     Dates: start: 20220106
  11. TORSEMIDE [Concomitant]
     Active Substance: TORSEMIDE
     Dosage: 10 MG, QD
     Route: 042
     Dates: start: 20211231
  12. TORSEMIDE [Concomitant]
     Active Substance: TORSEMIDE
     Dosage: 20 UG, QD
     Route: 042
     Dates: start: 20220101, end: 20220102
  13. TORSEMIDE [Concomitant]
     Active Substance: TORSEMIDE
     Dosage: 20 MG, QD
     Route: 042
     Dates: start: 20220105
  14. TORSEMIDE [Concomitant]
     Active Substance: TORSEMIDE
     Dosage: 20 MG, QD
     Route: 042
     Dates: start: 20220117
  15. TORSEMIDE [Concomitant]
     Active Substance: TORSEMIDE
     Dosage: 20 MG, QD
     Route: 042
     Dates: start: 20220119
  16. TORSEMIDE [Concomitant]
     Active Substance: TORSEMIDE
     Dosage: 20 MG, QD
     Route: 042
     Dates: start: 20220121, end: 20220222
  17. TORSEMIDE [Concomitant]
     Active Substance: TORSEMIDE
     Dosage: 10 MG, QD
     Route: 042
     Dates: start: 20220125, end: 20220222
  18. TORSEMIDE [Concomitant]
     Active Substance: TORSEMIDE
     Dosage: 20 MG, QD
     Route: 042
     Dates: start: 20220126, end: 20220222
  19. FUROSEMIDE [Concomitant]
     Active Substance: FUROSEMIDE
     Dosage: 10 MG, QD
     Route: 042
     Dates: start: 20211231
  20. FUROSEMIDE [Concomitant]
     Active Substance: FUROSEMIDE
     Dosage: 10 MG, QD
     Route: 042
     Dates: start: 20220105
  21. FUROSEMIDE [Concomitant]
     Active Substance: FUROSEMIDE
     Dosage: 10 MG, QD
     Route: 042
     Dates: start: 20220107
  22. FUROSEMIDE [Concomitant]
     Active Substance: FUROSEMIDE
     Dosage: 10 MG, QD
     Route: 042
     Dates: start: 20220111, end: 20220113
  23. ALBUMIN HUMAN [Concomitant]
     Active Substance: ALBUMIN HUMAN
     Dosage: 100 ML, QD
     Route: 042
     Dates: start: 20220105
  24. ALBUMIN HUMAN [Concomitant]
     Active Substance: ALBUMIN HUMAN
     Dosage: 100 ML, QD
     Route: 042
     Dates: start: 20220107
  25. ALBUMIN HUMAN [Concomitant]
     Active Substance: ALBUMIN HUMAN
     Dosage: 200 ML, QD
     Route: 042
     Dates: start: 20220119
  26. ALBUMIN HUMAN [Concomitant]
     Active Substance: ALBUMIN HUMAN
     Dosage: 100 ML, QD
     Route: 042
     Dates: start: 20220126
  27. HUMAN IMMUNOGLOBULIN G [Concomitant]
     Active Substance: HUMAN IMMUNOGLOBULIN G
     Dosage: 10 G, QD
     Route: 042
     Dates: start: 20220121
  28. HUMAN IMMUNOGLOBULIN G [Concomitant]
     Active Substance: HUMAN IMMUNOGLOBULIN G
     Dosage: 5 G, QD
     Route: 042
     Dates: start: 20220123
  29. HUMAN IMMUNOGLOBULIN G [Concomitant]
     Active Substance: HUMAN IMMUNOGLOBULIN G
     Dosage: 10 G, QD
     Route: 042
     Dates: start: 20220125
  30. HUMAN IMMUNOGLOBULIN G [Concomitant]
     Active Substance: HUMAN IMMUNOGLOBULIN G
     Dosage: 5 G, QD
     Route: 042
     Dates: start: 20220207
  31. HUMAN IMMUNOGLOBULIN G [Concomitant]
     Active Substance: HUMAN IMMUNOGLOBULIN G
     Dosage: 20 G, QD
     Route: 042
     Dates: start: 20220331
  32. HUMAN IMMUNOGLOBULIN G [Concomitant]
     Active Substance: HUMAN IMMUNOGLOBULIN G
     Dosage: 5 G, QD
     Route: 042
     Dates: start: 20220710
  33. PALONOSETRON HYDROCHLORIDE [Concomitant]
     Active Substance: PALONOSETRON HYDROCHLORIDE
     Indication: Lymphodepletion
     Dosage: 0.25 MG
     Route: 041
     Dates: start: 20220105, end: 20220106
  34. AMIFOSTINE [Concomitant]
     Active Substance: AMIFOSTINE
     Indication: Lymphodepletion
     Dosage: 400 MG
     Route: 041
     Dates: start: 20220105, end: 20220106
  35. AMIFOSTINE [Concomitant]
     Active Substance: AMIFOSTINE
     Dosage: 800 MG
     Route: 041
     Dates: start: 20220109, end: 20220109
  36. TIGECYCLINE [Concomitant]
     Active Substance: TIGECYCLINE
     Indication: Lymphodepletion
     Dosage: 50 MG
     Route: 041
     Dates: start: 20220105
  37. TORSEMIDE [Concomitant]
     Active Substance: TORSEMIDE
     Indication: Lymphodepletion
     Dosage: 20 MG
     Route: 041
     Dates: start: 20220105
  38. IBUPROFEN [Concomitant]
     Active Substance: IBUPROFEN

REACTIONS (16)
  - Cytokine release syndrome [Recovered/Resolved]
  - Hypokalaemia [Recovered/Resolved]
  - Hypomagnesaemia [Recovered/Resolved]
  - Anaemia [Not Recovered/Not Resolved]
  - Platelet count decreased [Not Recovered/Not Resolved]
  - White blood cell count decreased [Recovering/Resolving]
  - Neutrophil count decreased [Not Recovered/Not Resolved]
  - Hypoalbuminaemia [Recovered/Resolved]
  - Hypoglobulinaemia [Not Recovered/Not Resolved]
  - Hypophosphataemia [Recovered/Resolved]
  - Lymphocyte count decreased [Recovered/Resolved]
  - Blood lactate dehydrogenase increased [Not Recovered/Not Resolved]
  - Serum ferritin increased [Recovered/Resolved]
  - C-reactive protein increased [Recovered/Resolved]
  - Hypocalcaemia [Recovered/Resolved]
  - Pyrexia [Unknown]

NARRATIVE: CASE EVENT DATE: 20220116
